FAERS Safety Report 17257659 (Version 1)
Quarter: 2020Q1

REPORT INFORMATION
  Report Type: Spontaneous
  Country: ES (occurrence: ES)
  Receive Date: 20200110
  Receipt Date: 20200110
  Transmission Date: 20200409
  Serious: No
  Sender: FDA-Public Use
  Company Number: ES-TOLMAR, INC.-19ES000305

PATIENT
  Age: 88 Year
  Sex: Male

DRUGS (8)
  1. ATENOLOL. [Concomitant]
     Active Substance: ATENOLOL
  2. METAMIZOL [METAMIZOLE MAGNESIUM] [Concomitant]
     Active Substance: METAMIZOLE MAGNESIUM
  3. SECALIP [Concomitant]
     Active Substance: FENOFIBRATE
  4. ELIGARD [Suspect]
     Active Substance: LEUPROLIDE ACETATE
     Indication: PRODUCT USED FOR UNKNOWN INDICATION
     Dosage: 45 MG
     Route: 065
  5. LOSARTAN. [Concomitant]
     Active Substance: LOSARTAN
  6. CASODEX [Concomitant]
     Active Substance: BICALUTAMIDE
  7. PARACETAMOL [Concomitant]
     Active Substance: ACETAMINOPHEN
  8. SINTROM [Concomitant]
     Active Substance: ACENOCOUMAROL

REACTIONS (3)
  - Syringe issue [None]
  - Wrong technique in product usage process [None]
  - Intercepted medication error [None]

NARRATIVE: CASE EVENT DATE: 20190916
